FAERS Safety Report 25206690 (Version 3)
Quarter: 2025Q2

REPORT INFORMATION
  Report Type: Spontaneous
  Country: JP (occurrence: JP)
  Receive Date: 20250417
  Receipt Date: 20250606
  Transmission Date: 20250716
  Serious: Yes (Other)
  Sender: ASTELLAS
  Company Number: JP-ASTELLAS-2025-AER-020074

PATIENT
  Age: 32 Year
  Sex: Female

DRUGS (9)
  1. PROGRAF [Suspect]
     Active Substance: TACROLIMUS
     Indication: Immunosuppressant drug therapy
     Route: 065
  2. METHYLPREDNISOLONE [Suspect]
     Active Substance: METHYLPREDNISOLONE
     Indication: Immunosuppressant drug therapy
     Route: 065
  3. Aciclovir infusion [Concomitant]
     Indication: Antiviral prophylaxis
     Route: 042
  4. GATIFLOXACIN [Concomitant]
     Active Substance: GATIFLOXACIN
     Indication: Graft versus host disease in eye
     Dosage: 4 TIMES/DAY IN BOTH EYES
     Route: 047
  5. FLUOROMETHOLONE OPHTHALMIC SUSPENSION [Concomitant]
     Active Substance: FLUOROMETHOLONE
     Indication: Graft versus host disease in eye
     Dosage: 4 TIMES/DAY IN BOTH EYES
     Route: 047
  6. Aciclovir ophthalmic ointment [Concomitant]
     Indication: Ophthalmic herpes simplex
     Route: 047
  7. Aciclovir ophthalmic ointment [Concomitant]
     Indication: Roseolovirus test positive
  8. Ofloxacin ophthalmic ointment [Concomitant]
     Indication: Ophthalmic herpes simplex
     Route: 047
  9. Ofloxacin ophthalmic ointment [Concomitant]
     Indication: Roseolovirus test positive

REACTIONS (5)
  - Ophthalmic herpes simplex [Unknown]
  - Conjunctival defect [Unknown]
  - Corneal epithelium defect [Unknown]
  - Epstein-Barr virus test positive [Unknown]
  - Roseolovirus test positive [Unknown]
